FAERS Safety Report 20099738 (Version 7)
Quarter: 2022Q1

REPORT INFORMATION
  Report Type: Report from Study
  Country: US (occurrence: US)
  Receive Date: 20211123
  Receipt Date: 20220323
  Transmission Date: 20220423
  Serious: Yes (Disabling, Other)
  Sender: FDA-Public Use
  Company Number: US-BoehringerIngelheim-2020-BI-066031

PATIENT
  Age: 64 Year
  Sex: Female

DRUGS (6)
  1. OFEV [Suspect]
     Active Substance: NINTEDANIB
     Indication: Pulmonary arterial hypertension
     Route: 048
     Dates: start: 20201125, end: 20210409
  2. OFEV [Suspect]
     Active Substance: NINTEDANIB
     Indication: Idiopathic pulmonary fibrosis
     Route: 048
     Dates: start: 20210718
  3. PREDNISONE [Suspect]
     Active Substance: PREDNISONE
     Indication: Product used for unknown indication
  4. LOPERAMIDE [Suspect]
     Active Substance: LOPERAMIDE
     Indication: Diarrhoea
  5. OPSUMIT [Concomitant]
     Active Substance: MACITENTAN
     Indication: Pulmonary hypertension
  6. IBUPROFEN [Concomitant]
     Active Substance: IBUPROFEN
     Indication: Product used for unknown indication

REACTIONS (57)
  - Pulmonary arterial hypertension [Unknown]
  - Diarrhoea [Recovering/Resolving]
  - Dyspnoea [Not Recovered/Not Resolved]
  - Restless legs syndrome [Not Recovered/Not Resolved]
  - Cardiac disorder [Not Recovered/Not Resolved]
  - Pelvic floor dysfunction [Not Recovered/Not Resolved]
  - Sleep apnoea syndrome [Unknown]
  - Blood cholesterol increased [Not Recovered/Not Resolved]
  - Abdominal pain upper [Not Recovered/Not Resolved]
  - Gastric disorder [Not Recovered/Not Resolved]
  - Blood urea increased [Not Recovered/Not Resolved]
  - Blood creatinine increased [Not Recovered/Not Resolved]
  - Herpes zoster [Not Recovered/Not Resolved]
  - Arthropod sting [Unknown]
  - Hiatus hernia [Unknown]
  - Fatigue [Unknown]
  - Palpitations [Unknown]
  - Headache [Unknown]
  - Intervertebral disc protrusion [Unknown]
  - Sinusitis [Unknown]
  - Anaemia [Unknown]
  - Decreased appetite [Unknown]
  - Weight decreased [Unknown]
  - Gastrooesophageal reflux disease [Unknown]
  - Dyspepsia [Not Recovered/Not Resolved]
  - Oesophageal disorder [Unknown]
  - Arthritis [Unknown]
  - Injection site pain [Unknown]
  - Erythema [Unknown]
  - Joint swelling [Unknown]
  - Constipation [Unknown]
  - Abdominal discomfort [Unknown]
  - Eye pruritus [Unknown]
  - Throat irritation [Unknown]
  - Pelvic discomfort [Unknown]
  - Abdominal tenderness [Unknown]
  - Epistaxis [Unknown]
  - Blood pressure fluctuation [Not Recovered/Not Resolved]
  - Headache [Recovered/Resolved]
  - Oropharyngeal discomfort [Unknown]
  - Decreased appetite [Recovered/Resolved]
  - Autoimmune disorder [Unknown]
  - Thyroid disorder [Unknown]
  - Hypertension [Unknown]
  - Heart rate increased [Recovered/Resolved]
  - Weight decreased [Recovered/Resolved]
  - Pain [Unknown]
  - Sinus congestion [Unknown]
  - Respiratory tract congestion [Unknown]
  - Cough [Unknown]
  - Oropharyngeal pain [Unknown]
  - Chest discomfort [Unknown]
  - Malaise [Unknown]
  - Upper respiratory tract infection [Not Recovered/Not Resolved]
  - Lung disorder [Unknown]
  - Muscle atrophy [Unknown]
  - Haemorrhoids [Unknown]

NARRATIVE: CASE EVENT DATE: 20201201
